FAERS Safety Report 19991286 (Version 1)
Quarter: 2021Q4

REPORT INFORMATION
  Report Type: Spontaneous
  Country: US (occurrence: US)
  Receive Date: 20211022
  Receipt Date: 20211022
  Transmission Date: 20220303
  Serious: Yes (Other)
  Sender: FDA-Public Use
  Company Number: None

PATIENT
  Age: 40 Year
  Sex: Female

DRUGS (1)
  1. AMBRISENTAN [Suspect]
     Active Substance: AMBRISENTAN
     Indication: Pulmonary arterial hypertension
     Route: 048
     Dates: start: 20191017

REACTIONS (5)
  - Chest pain [None]
  - Alcohol use [None]
  - Vomiting [None]
  - Dehydration [None]
  - Hypokalaemia [None]

NARRATIVE: CASE EVENT DATE: 20210929
